FAERS Safety Report 16766978 (Version 1)
Quarter: 2019Q3

REPORT INFORMATION
  Report Type: Spontaneous
  Country: US (occurrence: US)
  Receive Date: 20190903
  Receipt Date: 20190903
  Transmission Date: 20191005
  Serious: No
  Sender: FDA-Public Use
  Company Number: US-SUNOVION-2019SUN003545

PATIENT
  Age: 26 Year
  Sex: Female

DRUGS (3)
  1. VALPROATE [Concomitant]
     Active Substance: VALPROIC ACID
  2. LATUDA [Suspect]
     Active Substance: LURASIDONE HYDROCHLORIDE
     Dosage: UNK
     Route: 048
  3. QUTIAPINE [Concomitant]

REACTIONS (1)
  - Feeling abnormal [Recovered/Resolved]
